FAERS Safety Report 12985496 (Version 1)
Quarter: 2016Q4

REPORT INFORMATION
  Report Type: Spontaneous
  Country: US (occurrence: US)
  Receive Date: 20161130
  Receipt Date: 20161130
  Transmission Date: 20170207
  Serious: No
  Sender: FDA-Public Use
  Company Number: US-TEVA-699887USA

PATIENT
  Sex: Female
  Weight: 72.64 kg

DRUGS (1)
  1. PREDNISONE. [Suspect]
     Active Substance: PREDNISONE

REACTIONS (4)
  - Head discomfort [Unknown]
  - Feeling abnormal [Unknown]
  - Diarrhoea [Unknown]
  - Abdominal discomfort [Unknown]
